FAERS Safety Report 5006412-X (Version None)
Quarter: 2006Q2

REPORT INFORMATION
  Report Type: 
  Country: None (occurrence: None)
  Receive Date: 20060516
  Receipt Date: 20060511
  Transmission Date: 20061013
  Serious: Yes (Other)
  Sender: FDA-Public Use
  Company Number: S06-USA-01495-01

PATIENT
  Sex: Female

DRUGS (4)
  1. NAMENDA [Suspect]
  2. ATIVAN [Suspect]
  3. ARICEPT [Suspect]
  4. SEROQUEL [Suspect]

REACTIONS (2)
  - DISEASE PROGRESSION [None]
  - MENTAL DISORDER [None]
